FAERS Safety Report 16734487 (Version 1)
Quarter: 2019Q3

REPORT INFORMATION
  Report Type: Spontaneous
  Country: CH (occurrence: CH)
  Receive Date: 20190823
  Receipt Date: 20190823
  Transmission Date: 20191005
  Serious: Yes (Death, Other)
  Sender: FDA-Public Use
  Company Number: CH-ACTELION-A-CH2019-194488

PATIENT
  Age: 52 Year
  Sex: Female

DRUGS (6)
  1. TICAGRELOR. [Concomitant]
     Active Substance: TICAGRELOR
  2. ROSUVASTATIN. [Concomitant]
     Active Substance: ROSUVASTATIN
  3. BOSENTAN. [Suspect]
     Active Substance: BOSENTAN
     Indication: ARTERIOSPASM CORONARY
     Route: 048
  4. PERINDOPRIL [Concomitant]
     Active Substance: PERINDOPRIL
  5. ASPIRIN. [Concomitant]
     Active Substance: ASPIRIN
  6. METOPROLOL. [Concomitant]
     Active Substance: METOPROLOL

REACTIONS (13)
  - Multiple organ dysfunction syndrome [Fatal]
  - Ejection fraction decreased [Unknown]
  - Coronary artery bypass [Unknown]
  - Ventricular hypokinesia [Unknown]
  - Angina pectoris [Unknown]
  - Arterial angioplasty [Unknown]
  - Fibromuscular dysplasia [Unknown]
  - Therapeutic product effect incomplete [Unknown]
  - Transplantation complication [Unknown]
  - Coronary artery thrombosis [Unknown]
  - Heart transplant [Unknown]
  - Emotional distress [Unknown]
  - Disseminated intravascular coagulation [Fatal]
